FAERS Safety Report 23262062 (Version 1)
Quarter: 2023Q4

REPORT INFORMATION
  Report Type: Spontaneous
  Country: PL (occurrence: PL)
  Receive Date: 20231205
  Receipt Date: 20231205
  Transmission Date: 20240110
  Serious: Yes (Life-Threatening)
  Sender: FDA-Public Use
  Company Number: PL-BAYER-2023A172505

PATIENT
  Age: 52 Year
  Sex: Male
  Weight: 120 kg

DRUGS (1)
  1. GADOBUTROL [Suspect]
     Active Substance: GADOBUTROL
     Dosage: 12 ML, ONCE
     Route: 042
     Dates: start: 20231128, end: 20231128

REACTIONS (4)
  - Blood pressure decreased [Recovered/Resolved]
  - Unresponsive to stimuli [Recovered/Resolved]
  - Dizziness [Recovered/Resolved]
  - Hyperactive pharyngeal reflex [Recovered/Resolved]

NARRATIVE: CASE EVENT DATE: 20231128
